FAERS Safety Report 7987945-0 (Version None)
Quarter: 2011Q4

REPORT INFORMATION
  Report Type: 
  Country: None (occurrence: None)
  Receive Date: 20111216
  Receipt Date: 20110512
  Transmission Date: 20120403
  Serious: No
  Sender: FDA-Public Use
  Company Number: US-BRISTOL-MYERS SQUIBB COMPANY-15740855

PATIENT
  Age: 25 Year
  Sex: Male

DRUGS (4)
  1. WELLBUTRIN [Suspect]
  2. ADDERALL 5 [Concomitant]
  3. ABILIFY [Suspect]
     Dates: start: 20091001
  4. LAMICTAL [Concomitant]

REACTIONS (1)
  - GYNAECOMASTIA [None]
